FAERS Safety Report 7236584-8 (Version None)
Quarter: 2011Q1

REPORT INFORMATION
  Report Type: 
  Country: None (occurrence: None)
  Receive Date: 20110120
  Receipt Date: 20110111
  Transmission Date: 20110831
  Serious: Yes (Hospitalization)
  Sender: FDA-Public Use
  Company Number: FR-PFIZER INC-2011013200

PATIENT
  Age: 71 Year
  Sex: Female

DRUGS (8)
  1. NEBIVOLOL [Concomitant]
     Dosage: UNK
  2. DIFFU K [Concomitant]
     Dosage: UNK
  3. ESOMEPRAZOLE [Concomitant]
     Dosage: UNK
  4. COUMADIN [Concomitant]
     Dosage: UNK
  5. ATHYMIL [Concomitant]
     Dosage: 10 MG, 1X/DAY
  6. FUROSEMIDE [Concomitant]
     Dosage: UNK
  7. LEVOTHYROX [Concomitant]
     Dosage: 75 UG, 1X/DAY
  8. CORDARONE [Suspect]
     Indication: ATRIAL FIBRILLATION
     Dosage: 200 MG, UNK
     Route: 048

REACTIONS (3)
  - BALANCE DISORDER [None]
  - CUSHING'S SYNDROME [None]
  - MUSCLE ATROPHY [None]
